FAERS Safety Report 5953290-8 (Version None)
Quarter: 2008Q4

REPORT INFORMATION
  Report Type: 
  Country: None (occurrence: None)
  Receive Date: 20081114
  Receipt Date: 20081112
  Transmission Date: 20090506
  Serious: Yes (Death, Hospitalization)
  Sender: FDA-Public Use
  Company Number: PHEH2008US02080

PATIENT
  Sex: Male
  Weight: 75.129 kg

DRUGS (2)
  1. EXJADE [Suspect]
     Indication: IRON OVERLOAD
     Dosage: 1500 UNK, QD
     Route: 048
     Dates: start: 20060217, end: 20080206
  2. EXJADE [Suspect]
     Indication: SICKLE CELL ANAEMIA

REACTIONS (2)
  - MALAISE [None]
  - SEPSIS [None]
